FAERS Safety Report 22916986 (Version 4)
Quarter: 2024Q1

REPORT INFORMATION
  Report Type: Report from Study
  Country: US (occurrence: US)
  Receive Date: 20230907
  Receipt Date: 20240320
  Transmission Date: 20240410
  Serious: No
  Sender: FDA-Public Use
  Company Number: US-002147023-NVSC2023US193800

PATIENT
  Sex: Female

DRUGS (5)
  1. KESIMPTA [Suspect]
     Active Substance: OFATUMUMAB
     Indication: Relapsing-remitting multiple sclerosis
     Dosage: 20 MG, QMO
     Route: 058
     Dates: start: 20220618
  2. KESIMPTA [Suspect]
     Active Substance: OFATUMUMAB
     Indication: Clinically isolated syndrome
  3. KESIMPTA [Suspect]
     Active Substance: OFATUMUMAB
     Indication: Secondary progressive multiple sclerosis
  4. VITAMIN D NOS [Concomitant]
     Active Substance: VITAMIN D NOS
     Indication: Product used for unknown indication
     Dosage: UNK (CHANGE IT AROUND)
     Route: 065
  5. VITAMIN D NOS [Concomitant]
     Active Substance: VITAMIN D NOS
     Dosage: UNK (PULL BACK)
     Route: 065

REACTIONS (3)
  - Fatigue [Not Recovered/Not Resolved]
  - Liver function test increased [Not Recovered/Not Resolved]
  - Immunoglobulins abnormal [Not Recovered/Not Resolved]
